FAERS Safety Report 8573673-X (Version None)
Quarter: 2012Q3

REPORT INFORMATION
  Report Type: 
  Country: None (occurrence: None)
  Receive Date: 20120806
  Receipt Date: 20120724
  Transmission Date: 20120928
  Serious: Yes (Other)
  Sender: FDA-Public Use
  Company Number: GB-TEVA-350272ISR

PATIENT
  Age: 66 Year
  Sex: Female
  Weight: 71 kg

DRUGS (3)
  1. LEVOTHYROXINE SODIUM [Suspect]
     Indication: HYPOTHYROIDISM
     Route: 048
     Dates: start: 20070101
  2. SYMBICORT [Concomitant]
     Indication: ASTHMA
     Dosage: 200/6
     Route: 048
     Dates: start: 20040101
  3. LEVOTHYROXINE SODIUM [Suspect]
     Route: 048

REACTIONS (12)
  - FATIGUE [None]
  - PAIN [None]
  - ARRHYTHMIA [None]
  - DEPRESSION [None]
  - TACHYCARDIA [None]
  - STRESS [None]
  - APATHY [None]
  - PANIC DISORDER [None]
  - PALPITATIONS [None]
  - HYPERHIDROSIS [None]
  - HEART RATE IRREGULAR [None]
  - EUPHORIC MOOD [None]
